FAERS Safety Report 6913929-7 (Version None)
Quarter: 2010Q3

REPORT INFORMATION
  Report Type: 
  Country: None (occurrence: None)
  Receive Date: 20100806
  Receipt Date: 20100806
  Transmission Date: 20110219
  Serious: Yes (Other)
  Sender: FDA-Public Use
  Company Number: None

PATIENT
  Sex: Female

DRUGS (1)
  1. GLY-OXIDE CARBAMIDE PEROXIDE 10% GLAXOSMITHKLINE, PHILADELPHIA PA [Suspect]
     Indication: APHTHOUS STOMATITIS
     Dosage: SEVERAL DROPS 4X/DAY ORAL
     Route: 048
     Dates: start: 20100726

REACTIONS (2)
  - BURNING SENSATION [None]
  - PRODUCT QUALITY ISSUE [None]
